FAERS Safety Report 24391631 (Version 3)
Quarter: 2025Q1

REPORT INFORMATION
  Report Type: Report from Study
  Country: US (occurrence: US)
  Receive Date: 20241003
  Receipt Date: 20250103
  Transmission Date: 20250409
  Serious: Yes (Hospitalization)
  Sender: JOHNSON AND JOHNSON
  Company Number: US-JNJFOC-20240957100

PATIENT
  Sex: Female

DRUGS (4)
  1. TECVAYLI [Suspect]
     Active Substance: TECLISTAMAB-CQYV
     Indication: Product used for unknown indication
     Route: 065
     Dates: start: 20221229
  2. TECVAYLI [Suspect]
     Active Substance: TECLISTAMAB-CQYV
     Route: 065
     Dates: start: 20230103
  3. TECVAYLI [Suspect]
     Active Substance: TECLISTAMAB-CQYV
     Route: 065
  4. METHYLPREDNISOLONE [Concomitant]
     Active Substance: METHYLPREDNISOLONE

REACTIONS (9)
  - Pneumonia [Unknown]
  - Thrombocytopenia [Unknown]
  - Dyspnoea [Unknown]
  - Cough [Unknown]
  - Headache [Unknown]
  - Platelet count decreased [Unknown]
  - Hypertension [Unknown]
  - Infection [Unknown]
  - Therapeutic product effect decreased [Unknown]
